FAERS Safety Report 6370072-6 (Version None)
Quarter: 2009Q3

REPORT INFORMATION
  Report Type: 
  Country: None (occurrence: None)
  Receive Date: 20090923
  Receipt Date: 20070607
  Transmission Date: 20100115
  Serious: Yes (Other)
  Sender: FDA-Public Use
  Company Number: US-ASTRAZENECA-2006UW21000

PATIENT
  Age: 33 Year
  Sex: Male
  Weight: 86.2 kg

DRUGS (14)
  1. SEROQUEL [Suspect]
     Indication: HALLUCINATION, AUDITORY
     Route: 048
     Dates: end: 20040101
  2. SEROQUEL [Suspect]
     Route: 048
     Dates: start: 20021030
  3. GEODON [Concomitant]
     Dates: start: 20050101
  4. GEODON [Concomitant]
     Dosage: 80-160 MG
     Dates: start: 20041012
  5. WELLBUTRIN [Concomitant]
     Indication: DEPRESSION
     Dates: start: 20051221
  6. LISINOPRIL [Concomitant]
     Indication: HYPERTENSION
  7. LISINOPRIL [Concomitant]
     Dates: start: 20070508
  8. HONDIN [Concomitant]
  9. HYDROXYZINE [Concomitant]
     Dates: start: 20060308
  10. TRAZODONE [Concomitant]
     Dosage: 50-100 MG
     Dates: start: 20041012, end: 20060308
  11. ATENOLOL [Concomitant]
     Indication: HYPERTENSION
     Dates: start: 20050824
  12. KLONOPIN [Concomitant]
     Dosage: 2-6 MG
     Dates: start: 20041012
  13. PAXIL [Concomitant]
     Dates: start: 20041012
  14. COGENTIN [Concomitant]
     Dates: start: 20050907

REACTIONS (5)
  - BIPOLAR DISORDER [None]
  - DEPRESSION [None]
  - MENTAL DISORDER [None]
  - PANCREATITIS [None]
  - SCHIZOPHRENIA [None]
